FAERS Safety Report 22257803 (Version 1)
Quarter: 2023Q2

REPORT INFORMATION
  Report Type: Spontaneous
  Country: ES (occurrence: ES)
  Receive Date: 20230427
  Receipt Date: 20230427
  Transmission Date: 20230722
  Serious: Yes (Other)
  Sender: FDA-Public Use
  Company Number: ES-BAYER-2023A056308

PATIENT
  Age: 86 Year
  Sex: Female

DRUGS (1)
  1. EYLEA [Suspect]
     Active Substance: AFLIBERCEPT
     Indication: Age-related macular degeneration
     Dosage: 3 DF, Q1MON; SOLUTION FOR INJECTION; STRENGTH: 40 MG/ML
     Route: 031

REACTIONS (4)
  - Retinal neovascularisation [Unknown]
  - Subretinal fluid [Recovered/Resolved]
  - Inappropriate schedule of product administration [Unknown]
  - Visual impairment [Unknown]
